FAERS Safety Report 21486137 (Version 1)
Quarter: 2022Q4

REPORT INFORMATION
  Report Type: Spontaneous
  Country: US (occurrence: None)
  Receive Date: 20221020
  Receipt Date: 20221020
  Transmission Date: 20230113
  Serious: No
  Sender: FDA-Public Use
  Company Number: 2022A345111

PATIENT
  Age: 65 Year

DRUGS (1)
  1. SYMBICORT [Suspect]
     Active Substance: BUDESONIDE\FORMOTEROL FUMARATE DIHYDRATE
     Dosage: 80MCG/4.5MCG, UNKNOWN NUMBER OF INHALATIONS, UNKNOWN FREQUENCY UNKNOWN
     Route: 055
     Dates: start: 2022

REACTIONS (4)
  - Cough [Unknown]
  - Malaise [Unknown]
  - Wrong technique in device usage process [Unknown]
  - Device issue [Unknown]

NARRATIVE: CASE EVENT DATE: 20220101
